FAERS Safety Report 18362409 (Version 2)
Quarter: 2021Q4

REPORT INFORMATION
  Report Type: Report from Study
  Country: DE (occurrence: DE)
  Receive Date: 20201008
  Receipt Date: 20211026
  Transmission Date: 20220303
  Serious: Yes (Hospitalization)
  Sender: FDA-Public Use
  Company Number: DE-ROCHE-2581298

PATIENT
  Age: 64 Year
  Sex: Female
  Weight: 55 kg

DRUGS (21)
  1. LORAZEPAM [Suspect]
     Active Substance: LORAZEPAM
     Indication: Trigeminal neuralgia
     Dosage: 2 MILLIGRAM, QD
     Route: 048
     Dates: start: 20200325, end: 20200325
  2. OXCARBAZEPINE [Suspect]
     Active Substance: OXCARBAZEPINE
     Indication: Trigeminal neuralgia
     Dosage: 150 MILLIGRAM, (0.25  DAY)
     Route: 048
  3. OXCARBAZEPINE [Suspect]
     Active Substance: OXCARBAZEPINE
     Indication: Ataxia
     Dosage: 1200 MILLIGRAM
     Route: 048
     Dates: start: 202003
  4. OXCARBAZEPINE [Suspect]
     Active Substance: OXCARBAZEPINE
     Dosage: 140 MILLIGRAM
     Route: 048
  5. OCRELIZUMAB [Suspect]
     Active Substance: OCRELIZUMAB
     Indication: Relapsing multiple sclerosis
     Dosage: 300 MILLIGRAM
     Route: 042
     Dates: start: 20190423, end: 20190508
  6. OCRELIZUMAB [Suspect]
     Active Substance: OCRELIZUMAB
     Dosage: 600 MILLIGRAM
     Route: 042
     Dates: start: 20191017
  7. RANITIDINE [Concomitant]
     Active Substance: RANITIDINE
     Dosage: 300 MILLIGRAM, (0.5 DAY)
     Route: 048
     Dates: start: 20190422, end: 20190424
  8. RANITIDINE [Concomitant]
     Active Substance: RANITIDINE
     Dosage: 300 MILLIGRAM, (0.5 DAY)
     Route: 048
     Dates: start: 20190507, end: 20190509
  9. PREDNISOLONE [Concomitant]
     Active Substance: PREDNISOLONE
     Dosage: 100 MILLIGRAM, QD
     Route: 042
     Dates: start: 20190423
  10. PREDNISOLONE [Concomitant]
     Active Substance: PREDNISOLONE
     Dosage: 100 MILLIGRAM, QD
     Route: 042
     Dates: start: 20190508, end: 20190508
  11. MISOPROSTOL [Concomitant]
     Active Substance: MISOPROSTOL
     Indication: Trigeminal neuralgia
     Dosage: 0.2 MILLIGRAM, (0.33 DAY)
  12. CHOLECALCIFEROL [Concomitant]
     Active Substance: CHOLECALCIFEROL
     Indication: Prophylaxis
     Dosage: 20000 INTERNATIONAL UNIT, QW
     Route: 048
     Dates: start: 20190415
  13. AERIUS (DESLORATADINE) [Concomitant]
     Active Substance: DESLORATADINE
     Dosage: 5 MILLIGRAM, (0.5 DAY)
     Route: 048
     Dates: start: 20190422, end: 20190424
  14. AERIUS (DESLORATADINE) [Concomitant]
     Active Substance: DESLORATADINE
     Dosage: 5 MILLIGRAM, (0.5 DAY)
     Route: 048
     Dates: start: 20190507, end: 20190509
  15. VIMPAT [Concomitant]
     Active Substance: LACOSAMIDE
     Indication: Trigeminal neuralgia
     Dosage: 100 MILLIGRAM, QD
     Route: 048
     Dates: start: 202002, end: 202003
  16. CYTOTEC [Concomitant]
     Active Substance: MISOPROSTOL
     Indication: Trigeminal neuralgia
     Dosage: 200 MILLIGRAM, (0.33 DAY)
     Route: 048
     Dates: start: 202003
  17. LORAZEPAM [Concomitant]
     Active Substance: LORAZEPAM
     Indication: Pain
     Dosage: 1 MILLIGRAM
     Route: 048
     Dates: start: 20200326, end: 202003
  18. LORAZEPAM [Concomitant]
     Active Substance: LORAZEPAM
     Indication: Muscle spasticity
  19. NABIXIMOLS [Concomitant]
     Active Substance: NABIXIMOLS
     Dosage: UNK, (0.33 DAY)
     Route: 048
  20. VENLAFAXINE [Concomitant]
     Active Substance: VENLAFAXINE HYDROCHLORIDE
     Dosage: 37.5 MILLIGRAM, QD
     Route: 048
     Dates: start: 20200410, end: 20200417
  21. VENLAFAXINE [Concomitant]
     Active Substance: VENLAFAXINE HYDROCHLORIDE
     Dosage: 37.5 MILLIGRAM, (0.5  DAY)
     Route: 048
     Dates: start: 20200418

REACTIONS (3)
  - Trigeminal neuralgia [Unknown]
  - Ataxia [Recovered/Resolved]
  - Gait disturbance [Recovered/Resolved]

NARRATIVE: CASE EVENT DATE: 20200326
